FAERS Safety Report 24549770 (Version 1)
Quarter: 2024Q4

REPORT INFORMATION
  Report Type: Spontaneous
  Country: US (occurrence: None)
  Receive Date: 20241024
  Receipt Date: 20241024
  Transmission Date: 20250115
  Serious: Yes (Death)
  Sender: Public
  Company Number: None

PATIENT
  Age: 73 Year
  Sex: Female

DRUGS (11)
  1. SKYRIZI [Suspect]
     Active Substance: RISANKIZUMAB-RZAA
     Indication: Psoriasis
     Dosage: OTHER FREQUENCY : EVERY12WEEKS;?
     Route: 058
     Dates: start: 20240717
  2. ALBUTEROL 0.083%(2.5MGl3ML) 25X3ML [Concomitant]
  3. BREO ELLIPTA 100-25MCG ORAL INH(30) [Concomitant]
  4. PANTOPRAZOLE [Concomitant]
     Active Substance: PANTOPRAZOLE
  5. CARVEDILOL 6.25MG TABLETS [Concomitant]
  6. DOCUSATE SOD 100MG CAPSULES [Concomitant]
  7. GABAPENTIN [Concomitant]
     Active Substance: GABAPENTIN
  8. HYDROXYZINE HCL 50MG TABS [Concomitant]
  9. INSULIN ASPART 100/ML INJ,10ML [Concomitant]
  10. INSULIN GLARGINE 100U/ML, 10ML [Concomitant]
  11. SYNTHROID 0.1MG (100MCG)TABLETS [Concomitant]

REACTIONS (1)
  - Death [None]

NARRATIVE: CASE EVENT DATE: 20241009
